FAERS Safety Report 23683955 (Version 1)
Quarter: 2024Q1

REPORT INFORMATION
  Report Type: Spontaneous
  Country: US (occurrence: None)
  Receive Date: 20240328
  Receipt Date: 20240328
  Transmission Date: 20240410
  Serious: Yes (Hospitalization)
  Sender: FDA-Public Use
  Company Number: None

PATIENT
  Age: 63 Year
  Sex: Male
  Weight: 108 kg

DRUGS (9)
  1. OZEMPIC [Suspect]
     Active Substance: SEMAGLUTIDE
     Indication: Diabetes mellitus
     Dosage: 3 INJECTIONS 1 PER WEEK SUBCUTANEOUS
     Route: 058
     Dates: start: 20231212, end: 20240107
  2. CARVEDILOL [Concomitant]
     Active Substance: CARVEDILOL
  3. ARIPIPRAZOLE [Concomitant]
     Active Substance: ARIPIPRAZOLE
  4. LEVOTHYROXINE [Concomitant]
     Active Substance: LEVOTHYROXINE\LEVOTHYROXINE SODIUM
  5. INSULIN NOS [Concomitant]
     Active Substance: INSULIN NOS
  6. ESCITALOPRAM [Concomitant]
     Active Substance: ESCITALOPRAM OXALATE
  7. BUPROPION [Concomitant]
     Active Substance: BUPROPION
  8. METFORMIN [Concomitant]
     Active Substance: METFORMIN HYDROCHLORIDE
  9. GLIPIZIDE [Concomitant]
     Active Substance: GLIPIZIDE

REACTIONS (8)
  - Small intestinal obstruction [None]
  - Impaired gastric emptying [None]
  - Vomiting [None]
  - Dehydration [None]
  - Back pain [None]
  - Neuroendocrine tumour [None]
  - Abdominal neoplasm [None]
  - Procedural failure [None]

NARRATIVE: CASE EVENT DATE: 20240107
